FAERS Safety Report 8449373-3 (Version None)
Quarter: 2012Q2

REPORT INFORMATION
  Report Type: 
  Country: None (occurrence: None)
  Receive Date: 20120619
  Receipt Date: 20120607
  Transmission Date: 20120825
  Serious: Yes (Hospitalization, Other)
  Sender: FDA-Public Use
  Company Number: JP-ROCHE-1077466

PATIENT
  Sex: Male
  Weight: 41 kg

DRUGS (6)
  1. HERCEPTIN [Suspect]
     Indication: GASTRIC CANCER RECURRENT
     Route: 041
     Dates: start: 20120419, end: 20120419
  2. MICARDIS [Concomitant]
     Route: 048
  3. XELODA [Suspect]
     Indication: GASTRIC CANCER RECURRENT
     Route: 048
     Dates: start: 20120419, end: 20120421
  4. PYDOXAL [Concomitant]
     Route: 048
     Dates: end: 20120421
  5. MAGMITT [Concomitant]
     Route: 048
  6. LANSOPRAZOLE [Concomitant]
     Route: 048

REACTIONS (4)
  - MUSCLE HAEMORRHAGE [None]
  - DISSEMINATED INTRAVASCULAR COAGULATION [None]
  - PLATELET COUNT DECREASED [None]
  - HAEMORRHAGE SUBCUTANEOUS [None]
